FAERS Safety Report 5505024-9 (Version None)
Quarter: 2007Q4

REPORT INFORMATION
  Report Type: 
  Country: None (occurrence: None)
  Receive Date: 20071102
  Receipt Date: 20071031
  Transmission Date: 20080405
  Serious: Yes (Hospitalization)
  Sender: FDA-Public Use
  Company Number: US-BRISTOL-MYERS SQUIBB COMPANY-13965561

PATIENT
  Age: 71 Year
  Sex: Male
  Weight: 69 kg

DRUGS (14)
  1. CISPLATIN [Suspect]
     Indication: SQUAMOUS CELL CARCINOMA
     Route: 042
     Dates: start: 20070320, end: 20070502
  2. RADIOTHERAPY [Suspect]
     Indication: SQUAMOUS CELL CARCINOMA
     Dates: start: 20070320, end: 20070504
  3. LISINOPRIL [Concomitant]
     Indication: HYPERTENSION
     Dates: start: 20030715
  4. GLYBURIDE AND METFORMIN HCL [Concomitant]
     Indication: DIABETES MELLITUS
     Dates: start: 20060215
  5. LORTAB [Concomitant]
     Indication: PAIN
     Dosage: ALSO TAKEN ON 05-MAR-2007 TO 09-APR-2007
     Dates: start: 20070423
  6. ZOFRAN ZYDIS [Concomitant]
     Dates: start: 20070305, end: 20070506
  7. SENOKOT [Concomitant]
     Indication: CONSTIPATION
     Dates: start: 20070319
  8. DEXAMETHASONE [Concomitant]
     Indication: CHEMOTHERAPY
     Dates: start: 20070321, end: 20070506
  9. NEXIUM [Concomitant]
     Indication: DYSPEPSIA
     Route: 048
     Dates: start: 20070325
  10. DURAGESIC-100 [Concomitant]
     Indication: PAIN
     Dates: start: 20070409
  11. LACTULOSE [Concomitant]
     Indication: CONSTIPATION
     Dates: start: 20070415
  12. NYSTATIN [Concomitant]
     Indication: ORAL CANDIDIASIS
     Dates: start: 20070423, end: 20070501
  13. MIRALAX [Concomitant]
     Indication: CONSTIPATION
     Dates: start: 20070430
  14. GLYCEROL 2.6% [Concomitant]
     Indication: CONSTIPATION

REACTIONS (3)
  - ANAEMIA [None]
  - HYPONATRAEMIA [None]
  - SOMNOLENCE [None]
